FAERS Safety Report 6701719-X (Version None)
Quarter: 2010Q2

REPORT INFORMATION
  Report Type: 
  Country: None (occurrence: None)
  Receive Date: 20100429
  Receipt Date: 20100419
  Transmission Date: 20101027
  Serious: Yes (Other)
  Sender: FDA-Public Use
  Company Number: PHHY2010US24797

PATIENT
  Sex: Female

DRUGS (14)
  1. METOPROLOL TARTRATE [Suspect]
     Dosage: UNK
  2. METFORMIN [Suspect]
  3. ATORVASTATIN [Suspect]
  4. PLAVIX [Suspect]
     Dosage: 75 MG
  5. LIPITOR [Suspect]
     Indication: MYOCARDIAL INFARCTION
     Dosage: 75 MG DAILY
     Dates: start: 19991201
  6. VITAMIN D [Suspect]
  7. POTASSIUM [Suspect]
  8. GLIPIZIDE [Suspect]
  9. ISOSORBIDE [Suspect]
  10. ETODOLAC [Suspect]
  11. CARVEDILOL [Suspect]
  12. PRILOSEC [Suspect]
  13. ACETAMINOPHEN AND HYDROCODONE BITARTRATE [Suspect]
  14. DIPHENHYDRAMINE [Suspect]

REACTIONS (9)
  - ABDOMINAL PAIN UPPER [None]
  - BACTERAEMIA [None]
  - CHEST PAIN [None]
  - DIARRHOEA [None]
  - DIZZINESS [None]
  - DYSPNOEA [None]
  - INSOMNIA [None]
  - NAUSEA [None]
  - PAIN IN EXTREMITY [None]
